FAERS Safety Report 6839994-3 (Version None)
Quarter: 2010Q3

REPORT INFORMATION
  Report Type: 
  Country: None (occurrence: None)
  Receive Date: 20100709
  Receipt Date: 20100701
  Transmission Date: 20110219
  Serious: Yes (Other)
  Sender: FDA-Public Use
  Company Number: WAES 1007USA00361

PATIENT
  Sex: Male

DRUGS (1)
  1. ISENTRESS [Suspect]
     Dosage: 400 MG/BID/PO
     Route: 048
     Dates: start: 20091221, end: 20100505

REACTIONS (2)
  - MANIA [None]
  - MENTAL DISORDER [None]
